FAERS Safety Report 9270807 (Version 2)
Quarter: 2013Q2

REPORT INFORMATION
  Report Type: Spontaneous
  Country: BR (occurrence: BR)
  Receive Date: 20130503
  Receipt Date: 20130528
  Transmission Date: 20140414
  Serious: Yes (Disabling)
  Sender: FDA-Public Use
  Company Number: BR-B.I. PHARMACEUTICALS,INC./RIDGEFIELD-2013-BR-00490BR

PATIENT
  Age: 79 Year
  Sex: Female

DRUGS (3)
  1. SPIRIVA RESPIMAT [Suspect]
     Indication: COUGH
     Dosage: 5 MCG
     Dates: start: 201212
  2. LOSARTAN [Concomitant]
     Indication: HYPERTENSION
     Dates: start: 2009
  3. DONAREN [Concomitant]
     Indication: OSTEOPENIA
     Dates: start: 2011

REACTIONS (3)
  - Arthralgia [Recovered/Resolved]
  - Gait disturbance [Recovered/Resolved]
  - Fall [Recovered/Resolved]
